FAERS Safety Report 6600971-9 (Version None)
Quarter: 2010Q1

REPORT INFORMATION
  Report Type: 
  Country: None (occurrence: None)
  Receive Date: 20100225
  Receipt Date: 20100215
  Transmission Date: 20100710
  Serious: Yes (Death, Other)
  Sender: FDA-Public Use
  Company Number: US-JNJFOC-20050500228

PATIENT
  Age: 19 Year
  Sex: Female
  Weight: 68.49 kg

DRUGS (3)
  1. DURAGESIC-100 [Suspect]
     Indication: INTENTIONAL DRUG MISUSE
     Route: 048
  2. PROPOXYPHENE HCL [Suspect]
     Indication: INTENTIONAL DRUG MISUSE
     Route: 065
  3. DEXTROMETHORPHAN [Suspect]
     Indication: DRUG USE FOR UNKNOWN INDICATION
     Route: 065

REACTIONS (3)
  - DRUG ABUSE [None]
  - DRUG TOXICITY [None]
  - OVERDOSE [None]
